FAERS Safety Report 4999325-0 (Version None)
Quarter: 2006Q2

REPORT INFORMATION
  Report Type: 
  Country: None (occurrence: None)
  Receive Date: 20060509
  Receipt Date: 20060425
  Transmission Date: 20061013
  Serious: Yes (Hospitalization)
  Sender: FDA-Public Use
  Company Number: 2006_000012

PATIENT
  Age: 69 Year
  Sex: Female

DRUGS (20)
  1. DEPOCYT [Suspect]
     Indication: NERVOUS SYSTEM DISORDER
     Dosage: 50 MG; INTH
     Dates: start: 20060101, end: 20060303
  2. DEPOCYT [Suspect]
     Indication: PROPHYLAXIS
     Dosage: 50 MG; INTH
     Dates: start: 20060101, end: 20060303
  3. METHOTREXATE [Concomitant]
  4. LEUCOVORIN [Concomitant]
  5. PLAQUENIL [Concomitant]
  6. PRAVACHOL [Concomitant]
  7. CELEBREX [Concomitant]
  8. FLEXERIL [Concomitant]
  9. CARDIZEM CD [Concomitant]
  10. AMBIEN [Concomitant]
  11. BACTRIM DS [Concomitant]
  12. ZOVIRAX [Concomitant]
  13. DIFLUCAN [Concomitant]
  14. DECADRON SRC [Concomitant]
  15. VINCRISTINE [Concomitant]
  16. CYTOXAN [Concomitant]
  17. PREDNISONE TAB [Concomitant]
  18. ELSPAR [Concomitant]
  19. CYTARABINE [Concomitant]
  20. DAUNORUBICIN [Concomitant]

REACTIONS (11)
  - ASTHENIA [None]
  - BENIGN INTRACRANIAL HYPERTENSION [None]
  - DECREASED APPETITE [None]
  - DIZZINESS [None]
  - FATIGUE [None]
  - NAUSEA [None]
  - OPTIC NERVE DISORDER [None]
  - PAPILLOEDEMA [None]
  - RETINAL HAEMORRHAGE [None]
  - THROMBOSIS [None]
  - VITH NERVE PARALYSIS [None]
